FAERS Safety Report 20787680 (Version 2)
Quarter: 2022Q2

REPORT INFORMATION
  Report Type: Report from Study
  Country: PL (occurrence: None)
  Receive Date: 20220505
  Receipt Date: 20220508
  Transmission Date: 20220721
  Serious: Yes (Hospitalization)
  Sender: FDA-Public Use
  Company Number: PL-ROCHE-3085060

PATIENT
  Age: 63 Year
  Sex: Female
  Weight: 73.6 kg

DRUGS (2)
  1. OBINUTUZUMAB [Suspect]
     Active Substance: OBINUTUZUMAB
     Indication: Follicular lymphoma
     Dosage: ON 08/MAR/2022, LAST DOSE OF OBINUTUZUMAB 100 MG PRIOR TO SERIOUS ADVERSE EVENT.
     Route: 042
     Dates: start: 20200713
  2. ZANUBRUTINIB [Suspect]
     Active Substance: ZANUBRUTINIB
     Indication: Follicular lymphoma
     Dosage: ON 15/APR/2022, LAST DOSE OF ZANUBRUTINIB 160 MG PRIOR TO SERIOUS ADVERSE EVENT.
     Route: 048
     Dates: start: 20200713

REACTIONS (1)
  - COVID-19 [Recovering/Resolving]

NARRATIVE: CASE EVENT DATE: 20220415
